FAERS Safety Report 4451830-1 (Version None)
Quarter: 2004Q3

REPORT INFORMATION
  Report Type: 
  Country: None (occurrence: None)
  Receive Date: 20040915
  Receipt Date: 20040915
  Transmission Date: 20050211
  Serious: Yes (Life-Threatening, Hospitalization)
  Sender: FDA-Public Use
  Company Number: None

PATIENT
  Age: 57 Year
  Sex: Male
  Weight: 95.2554 kg

DRUGS (13)
  1. GENTAMICIN [Suspect]
     Indication: ENDOCARDITIS STAPHYLOCOCCAL
     Dosage: 80 MG Q 12 HRS IV
     Route: 042
     Dates: start: 20040106, end: 20040113
  2. RIFAMPIN [Concomitant]
  3. CLOPIGREL [Concomitant]
  4. MORPHINE SULFATE [Concomitant]
  5. NORTRIPTYLINE HCL [Concomitant]
  6. RABEPRAZOLE SODIUM [Concomitant]
  7. SIMVASTATIN [Concomitant]
  8. INSULIN [Concomitant]
  9. GLYBURIDE [Concomitant]
  10. ALDACTONE [Concomitant]
  11. MG2 [Concomitant]
  12. METOLAZONE [Concomitant]
  13. ZOLOFT [Concomitant]

REACTIONS (1)
  - RENAL FAILURE ACUTE [None]
